FAERS Safety Report 7509962-7 (Version None)
Quarter: 2011Q2

REPORT INFORMATION
  Report Type: 
  Country: None (occurrence: None)
  Receive Date: 20110527
  Receipt Date: 20110419
  Transmission Date: 20111010
  Serious: Yes (Hospitalization)
  Sender: FDA-Public Use
  Company Number: GB-BAYER-2011-036340

PATIENT
  Age: 20 Year
  Sex: Female

DRUGS (2)
  1. GONADOTROPIN RELEASING HORMONE (GNRH) [Concomitant]
  2. MIRENA [Suspect]
     Indication: PREVENTION OF ENDOMETRIAL HYPERPLASIA
     Dosage: 20 ?G/D, CONT
     Dates: end: 20090801

REACTIONS (5)
  - INTENTIONAL SELF-INJURY [None]
  - SUICIDAL IDEATION [None]
  - PREMENSTRUAL SYNDROME [None]
  - SUICIDE ATTEMPT [None]
  - DEPRESSION [None]
